FAERS Safety Report 5010384-1 (Version None)
Quarter: 2006Q2

REPORT INFORMATION
  Report Type: 
  Country: None (occurrence: None)
  Receive Date: 20060523
  Receipt Date: 20060515
  Transmission Date: 20061013
  Serious: Yes (Hospitalization)
  Sender: FDA-Public Use
  Company Number: CIP06001077

PATIENT
  Age: 84 Year
  Sex: Female

DRUGS (9)
  1. ACTONEL [Suspect]
     Dosage: 35 MG ONCE WEEKLY, ORAL
     Route: 048
     Dates: start: 20040101
  2. VIACTIV /USA/ (CALCIUM) [Concomitant]
  3. NORVASC [Concomitant]
  4. SYNTHROID [Concomitant]
  5. ZOLOFT [Concomitant]
  6. PROTONIX [Concomitant]
  7. VISTARIL (HYDROXYZINE EMBONATE) [Concomitant]
  8. DIOVAN [Concomitant]
  9. ASCORBIC ACID [Concomitant]

REACTIONS (2)
  - FULL BLOOD COUNT DECREASED [None]
  - FULL BLOOD COUNT INCREASED [None]
